FAERS Safety Report 7658977-7 (Version None)
Quarter: 2011Q3

REPORT INFORMATION
  Report Type: 
  Country: None (occurrence: None)
  Receive Date: 20110805
  Receipt Date: 20110722
  Transmission Date: 20111222
  Serious: Yes (Hospitalization)
  Sender: FDA-Public Use
  Company Number: US-ELI_LILLY_AND_COMPANY-US201107007710

PATIENT
  Sex: Female

DRUGS (16)
  1. FORTEO [Suspect]
     Indication: OSTEOPOROSIS
     Dosage: 20 UG, QD
     Route: 065
     Dates: start: 20110401
  2. SPIRIVA [Concomitant]
     Dosage: UNK, QD
  3. VITAMIN D [Concomitant]
  4. SIMVASTATIN [Concomitant]
     Indication: BLOOD CHOLESTEROL ABNORMAL
     Dosage: 40 MG, QD
  5. LEVOTHROID [Concomitant]
     Indication: THYROID DISORDER
     Dosage: 0.1 MG, UNK
  6. ALBUTEROL SULFATE AUTOHALER [Concomitant]
     Dosage: UNK, QD
  7. CELEBREX [Concomitant]
     Dosage: 200 MG, QD
  8. FORTEO [Suspect]
     Dosage: 20 UG, QD
     Route: 065
  9. ADVAIR DISKUS 100/50 [Concomitant]
     Dosage: UNK, QD
  10. HYDROCODONE BITARTRATE AND ACETAMINOPHEN [Concomitant]
     Indication: PAIN
     Dosage: 10.5 MG, UNK
  11. HYDROCODONE [Concomitant]
     Dosage: 10 MG, UNK
  12. LORTAB [Concomitant]
  13. ZETIA [Concomitant]
     Indication: BLOOD CHOLESTEROL ABNORMAL
     Dosage: 10 MG, QD
  14. MUCINEX [Concomitant]
     Indication: COUGH
  15. ZYRTEC [Concomitant]
     Indication: HYPERSENSITIVITY
  16. LIQUID CALCIUM                     /00751501/ [Concomitant]

REACTIONS (3)
  - COMPRESSION FRACTURE [None]
  - BONE PAIN [None]
  - OSTEOPOROSIS [None]
